FAERS Safety Report 12630437 (Version 5)
Quarter: 2016Q4

REPORT INFORMATION
  Report Type: Report from Study
  Country: None (occurrence: RO)
  Receive Date: 20160808
  Receipt Date: 20161125
  Transmission Date: 20170207
  Serious: Yes (Death, Hospitalization)
  Sender: FDA-Public Use
  Company Number: RO-ABBVIE-16K-135-1693422-00

PATIENT
  Age: 62 Year
  Sex: Female

DRUGS (3)
  1. DUODOPA [Suspect]
     Active Substance: CARBIDOPA\LEVODOPA
     Indication: PARKINSON^S DISEASE
     Dosage: MD - 3 ML, CR - 2.3 ML, ED - 1.2 ML
     Route: 050
     Dates: start: 20141209
  2. DUODOPA [Suspect]
     Active Substance: CARBIDOPA\LEVODOPA
     Route: 050
     Dates: start: 20160913
  3. DUODOPA [Suspect]
     Active Substance: CARBIDOPA\LEVODOPA
     Dosage: MD- 3 ML, CR - 1.6 ML, ED -1 ML
     Route: 050

REACTIONS (5)
  - Pneumonia [Recovering/Resolving]
  - Agitation [Not Recovered/Not Resolved]
  - Urinary tract infection [Recovering/Resolving]
  - Death [Fatal]
  - Proteus infection [Recovering/Resolving]

NARRATIVE: CASE EVENT DATE: 20161117
